FAERS Safety Report 9452755 (Version 1)
Quarter: 2013Q3

REPORT INFORMATION
  Report Type: Report from Study
  Country: US (occurrence: US)
  Receive Date: 20130812
  Receipt Date: 20130812
  Transmission Date: 20140515
  Serious: Yes (Hospitalization)
  Sender: FDA-Public Use
  Company Number: PHEH2013US016982

PATIENT
  Age: 71 Year
  Sex: Male
  Weight: 190 kg

DRUGS (10)
  1. ZOMETA [Suspect]
     Dosage: 4 MG
  2. ANDROGEL [Concomitant]
     Dosage: UNK UKN, UNK
  3. XARELTO [Concomitant]
     Dosage: UNK UKN, UNK
  4. DILTIAZEM [Concomitant]
     Dosage: UNK UKN, UNK
  5. FLAXSEED OIL [Concomitant]
     Dosage: UNK UKN, UNK
  6. OMEPRAZOLE [Concomitant]
     Dosage: UNK UKN, UNK
  7. OXYCONTIN [Concomitant]
     Dosage: UNK UKN, UNK
  8. OXYCODONE [Concomitant]
     Dosage: UNK UKN, UNK
  9. CLARITIN [Concomitant]
     Dosage: UNK UKN, UNK
  10. DEXAMETHASONE [Concomitant]
     Dosage: UNK UKN, UNK

REACTIONS (5)
  - Bronchitis [Recovered/Resolved]
  - Dyspnoea [Unknown]
  - Nasopharyngitis [Unknown]
  - Fluid retention [Unknown]
  - Constipation [Unknown]
